FAERS Safety Report 10194376 (Version 1)
Quarter: 2014Q2

REPORT INFORMATION
  Report Type: Spontaneous
  Country: NL (occurrence: NL)
  Receive Date: 20140526
  Receipt Date: 20140526
  Transmission Date: 20141212
  Serious: Yes (Death)
  Sender: FDA-Public Use
  Company Number: NL-AMGEN INC.-NLDSP2013093436

PATIENT
  Age: 78 Year
  Sex: Male

DRUGS (1)
  1. NEULASTA [Suspect]
     Indication: PROPHYLAXIS
     Dosage: 6 MG, 1X2W
     Route: 058
     Dates: start: 20130815

REACTIONS (1)
  - Death [Fatal]
